FAERS Safety Report 10012228 (Version 1)
Quarter: 2014Q1

REPORT INFORMATION
  Report Type: Spontaneous
  Country: US (occurrence: None)
  Receive Date: 20140313
  Receipt Date: 20140313
  Transmission Date: 20141002
  Serious: Yes (Other)
  Sender: FDA-Public Use
  Company Number: None

PATIENT
  Sex: 0

DRUGS (1)
  1. PROLIA [Suspect]
     Indication: OSTEOPOROSIS PROPHYLAXIS
     Dates: start: 20130620

REACTIONS (4)
  - Contusion [None]
  - Pain [None]
  - Back pain [None]
  - Pain in extremity [None]
